FAERS Safety Report 12704203 (Version 1)
Quarter: 2016Q3

REPORT INFORMATION
  Report Type: Spontaneous
  Country: IN (occurrence: IN)
  Receive Date: 20160831
  Receipt Date: 20160831
  Transmission Date: 20161109
  Serious: Yes (Other)
  Sender: FDA-Public Use
  Company Number: IN-MYLANLABS-2016M1036864

PATIENT

DRUGS (4)
  1. LABETALOL [Suspect]
     Active Substance: LABETALOL\LABETALOL HYDROCHLORIDE
     Indication: TAKAYASU^S ARTERITIS
     Route: 065
  2. NIFEDIPINE. [Suspect]
     Active Substance: NIFEDIPINE
     Indication: TAKAYASU^S ARTERITIS
     Route: 065
  3. ALPHADOPA [Suspect]
     Active Substance: METHYLDOPA
     Indication: TAKAYASU^S ARTERITIS
     Route: 065
  4. METHYLPREDNISOLONE. [Suspect]
     Active Substance: METHYLPREDNISOLONE
     Indication: IMMUNOSUPPRESSANT DRUG THERAPY
     Route: 065

REACTIONS (4)
  - Exposure during pregnancy [Recovered/Resolved]
  - Premature delivery [Unknown]
  - Maternal exposure during pregnancy [None]
  - Umbilical cord vascular disorder [None]
